FAERS Safety Report 7933792-5 (Version None)
Quarter: 2011Q4

REPORT INFORMATION
  Report Type: 
  Country: None (occurrence: None)
  Receive Date: 20111122
  Receipt Date: 20111114
  Transmission Date: 20120403
  Serious: Yes (Hospitalization, Other)
  Sender: FDA-Public Use
  Company Number: GB-GENZYME-THYM-1002901

PATIENT
  Age: 36 Year
  Sex: Female
  Weight: 75 kg

DRUGS (11)
  1. MYCOPHENOLATE MOFETIL [Concomitant]
     Indication: PRODUCT USED FOR UNKNOWN INDICATION
  2. ATENOLOL [Concomitant]
     Indication: PRODUCT USED FOR UNKNOWN INDICATION
  3. FERROUS GLUCONATE [Concomitant]
     Indication: PRODUCT USED FOR UNKNOWN INDICATION
  4. FLUCONAZOLE [Concomitant]
     Indication: PRODUCT USED FOR UNKNOWN INDICATION
  5. OMEPRAZOLE [Concomitant]
     Indication: PRODUCT USED FOR UNKNOWN INDICATION
  6. SIMVASTATIN [Concomitant]
     Indication: PRODUCT USED FOR UNKNOWN INDICATION
  7. THYMOGLOBULIN [Suspect]
     Indication: TRANSPLANT REJECTION
     Dosage: UNK
     Route: 042
     Dates: start: 20110903, end: 20110909
  8. CITALOPRAM HYDROBROMIDE [Concomitant]
     Indication: PRODUCT USED FOR UNKNOWN INDICATION
  9. COTRIM [Concomitant]
     Indication: PRODUCT USED FOR UNKNOWN INDICATION
  10. PREDNISOLONE [Concomitant]
     Indication: PRODUCT USED FOR UNKNOWN INDICATION
  11. TACROLIMUS [Concomitant]
     Indication: PRODUCT USED FOR UNKNOWN INDICATION

REACTIONS (10)
  - NAUSEA [None]
  - MALAISE [None]
  - SERUM SICKNESS [None]
  - RASH [None]
  - ARTHRALGIA [None]
  - VOMITING [None]
  - PYREXIA [None]
  - BLOOD PRESSURE DECREASED [None]
  - TENDERNESS [None]
  - BLOOD CREATININE INCREASED [None]
